FAERS Safety Report 5518016-0 (Version None)
Quarter: 2007Q4

REPORT INFORMATION
  Report Type: 
  Country: None (occurrence: None)
  Receive Date: 20071115
  Receipt Date: 20071108
  Transmission Date: 20080405
  Serious: Yes (Life-Threatening, Hospitalization)
  Sender: FDA-Public Use
  Company Number: PHHO2007DE18519

PATIENT
  Age: 79 Year
  Sex: Female
  Weight: 55 kg

DRUGS (5)
  1. ZOLEDRONIC ACID [Suspect]
     Indication: OSTEOPOROSIS
     Dosage: 5 MG, UNK
     Route: 042
     Dates: start: 20071106
  2. VITAMIN D [Concomitant]
  3. CALCIUM [Concomitant]
  4. MONOMACK [Concomitant]
  5. CALOGEN [Concomitant]

REACTIONS (2)
  - HYPERNATRAEMIA [None]
  - LOSS OF CONSCIOUSNESS [None]
